FAERS Safety Report 7349295-5 (Version None)
Quarter: 2011Q1

REPORT INFORMATION
  Report Type: 
  Country: None (occurrence: None)
  Receive Date: 20110314
  Receipt Date: 20101221
  Transmission Date: 20110831
  Serious: No
  Sender: FDA-Public Use
  Company Number: US-B.I. PHARMACEUTICALS,INC./RIDGEFIELD-2010-BP-15194BP

PATIENT
  Sex: Female

DRUGS (1)
  1. PRADAXA [Suspect]
     Indication: ATRIAL FIBRILLATION
     Dosage: 300 MG
     Route: 048
     Dates: start: 20101216, end: 20101218

REACTIONS (8)
  - HAEMATOMA [None]
  - CONTUSION [None]
  - HAEMORRHAGE [None]
  - VAGINAL HAEMORRHAGE [None]
  - HEADACHE [None]
  - ABDOMINAL PAIN UPPER [None]
  - DIARRHOEA [None]
  - RECTAL HAEMORRHAGE [None]
